FAERS Safety Report 8923948 (Version 4)
Quarter: 2013Q2

REPORT INFORMATION
  Report Type: Spontaneous
  Country: IE (occurrence: IE)
  Receive Date: 20121126
  Receipt Date: 20130501
  Transmission Date: 20140414
  Serious: Yes (Other)
  Sender: FDA-Public Use
  Company Number: IE-ABBOTT-12P-229-0986153-00

PATIENT
  Age: 79 Year
  Sex: Male

DRUGS (1)
  1. PROSTAP 3 [Suspect]
     Indication: PROSTATE CANCER
     Dosage: SUSPENSION

REACTIONS (4)
  - Pain in extremity [Recovering/Resolving]
  - Abdominal pain [Recovering/Resolving]
  - Diarrhoea [Recovering/Resolving]
  - Incorrect route of drug administration [Unknown]
